FAERS Safety Report 19890359 (Version 1)
Quarter: 2021Q3

REPORT INFORMATION
  Report Type: Spontaneous
  Country: NL (occurrence: NL)
  Receive Date: 20210928
  Receipt Date: 20210928
  Transmission Date: 20211014
  Serious: Yes (Hospitalization, Other)
  Sender: FDA-Public Use
  Company Number: NL-ASTRAZENECA-2021A733108

PATIENT
  Age: 63 Year
  Sex: Female

DRUGS (2)
  1. FULVESTRANT. [Suspect]
     Active Substance: FULVESTRANT
     Dosage: 500.0MG UNKNOWN
     Route: 065
  2. PALBOCICLIB [Suspect]
     Active Substance: PALBOCICLIB
     Dosage: 125.0MG UNKNOWN
     Route: 065
     Dates: start: 20190408, end: 20190821

REACTIONS (8)
  - Anaemia [Unknown]
  - Somnolence [Unknown]
  - Urosepsis [Unknown]
  - Chills [Unknown]
  - Fatigue [Unknown]
  - Syncope [Unknown]
  - Feeling hot [Unknown]
  - Dysuria [Unknown]

NARRATIVE: CASE EVENT DATE: 20190808
